FAERS Safety Report 19570463 (Version 4)
Quarter: 2021Q3

REPORT INFORMATION
  Report Type: Spontaneous
  Country: ES (occurrence: ES)
  Receive Date: 20210716
  Receipt Date: 20210827
  Transmission Date: 20211014
  Serious: Yes (Death, Hospitalization, Other)
  Sender: FDA-Public Use
  Company Number: ES-MYLANLABS-2021M1042762

PATIENT
  Age: 92 Year
  Sex: Female
  Weight: 46 kg

DRUGS (12)
  1. FUROSEMIDE. [Concomitant]
     Active Substance: FUROSEMIDE
     Indication: AORTIC STENOSIS
     Dosage: DOSE 40 (UNIT NOT PROVIDED); TOTAL DAILY DOSE 40 (UNIT NOT PROVIDED)
     Route: 048
  2. ZINPLAVA [Suspect]
     Active Substance: BEZLOTOXUMAB
     Indication: INFECTION PROPHYLAXIS
     Dosage: 10 MG/KG, SINGLE DOSE
     Route: 042
     Dates: start: 20190320
  3. CLOPIDOGREL [Concomitant]
     Active Substance: CLOPIDOGREL BISULFATE
     Indication: AORTIC STENOSIS
     Dosage: DOSE 75 (UNIT NOT PROVIDED); TOTAL DAILY DOSE 75 (UNIT NOT PROVIDED)
     Route: 048
  4. VANCOMYCIN [Suspect]
     Active Substance: VANCOMYCIN
     Indication: CLOSTRIDIUM DIFFICILE INFECTION
     Dosage: UNK
  5. BROMAZEPAM [Concomitant]
     Active Substance: BROMAZEPAM
     Indication: DEPRESSION
     Dosage: DOSE 1.5 (UNIT NOT PROVIDED), TOTAL DAILY DOSE 1.5 (UNIT NOT PROVIDED)
     Route: 048
  6. TRADONAL [Concomitant]
     Active Substance: TRAMADOL HYDROCHLORIDE
     Indication: OSTEOPOROSIS
     Dosage: DOSE 100 (UNIT NOT PROVIDED); TOTAL DAILY DOSE 20 (UNIT NOT PROVIDED)
     Route: 048
  7. ALLOPURINOL. [Concomitant]
     Active Substance: ALLOPURINOL
     Indication: GOUT
     Dosage: DOSE 100 (UNIT NOT PROVIDED); TOTAL DAILY DOSE 100 (UNIT NOT PROVIDED)
     Route: 048
  8. FERRO?GRADUMET                     /00023503/ [Concomitant]
     Indication: ANAEMIA
     Dosage: DOSE 575 (UNIT NOT PROVIDED); TOTAL DAILY DOSE 575 (UNIT NOT PROVIDED)
     Route: 048
  9. QUETIAPINE FUMARATE. [Concomitant]
     Active Substance: QUETIAPINE FUMARATE
     Indication: DEPRESSION
     Dosage: DOSE 25 (UNIT NOT PROVIDED); TOTAL DAILY DOSE 25 (UNIT NOT PROVIDED)
     Route: 048
  10. IRBESARTAN. [Concomitant]
     Active Substance: IRBESARTAN
     Indication: HYPERTENSION
     Dosage: DOSE 75 (UNIT NOT PROVIDED); TOTAL DAILY DOSE 75 (UNIT NOT PROVIDED)
     Route: 048
  11. FIDAXOMICIN [Suspect]
     Active Substance: FIDAXOMICIN
     Indication: CLOSTRIDIUM DIFFICILE INFECTION
     Dosage: UNK
     Route: 048
  12. ZINPLAVA [Suspect]
     Active Substance: BEZLOTOXUMAB
     Indication: CLOSTRIDIUM DIFFICILE INFECTION

REACTIONS (3)
  - Death [Fatal]
  - Clostridium difficile infection [Recovered/Resolved]
  - Treatment failure [Unknown]

NARRATIVE: CASE EVENT DATE: 20190510
